FAERS Safety Report 4775724-7 (Version None)
Quarter: 2005Q3

REPORT INFORMATION
  Report Type: 
  Country: None (occurrence: None)
  Receive Date: 20050920
  Receipt Date: 20050920
  Transmission Date: 20060218
  Serious: Yes (Hospitalization)
  Sender: FDA-Public Use
  Company Number: None

PATIENT
  Age: 80 Year
  Sex: Male
  Weight: 73.5 kg

DRUGS (1)
  1. NAPROXEN [Suspect]

REACTIONS (1)
  - DYSPEPSIA [None]
